FAERS Safety Report 9967369 (Version 1)
Quarter: 2014Q1

REPORT INFORMATION
  Report Type: Report from Study
  Country: US (occurrence: US)
  Receive Date: 20140305
  Receipt Date: 20140305
  Transmission Date: 20141002
  Serious: No
  Sender: FDA-Public Use
  Company Number: US-ABBVIE-13P-163-1137709-00

PATIENT
  Sex: Female
  Weight: 122.58 kg

DRUGS (15)
  1. HUMIRA [Suspect]
     Indication: PSORIASIS
     Route: 058
     Dates: end: 2011
  2. CYMBALTA [Concomitant]
     Indication: FIBROMYALGIA
  3. METFORMIN [Concomitant]
     Indication: DIABETES MELLITUS
  4. BYDUREON [Concomitant]
     Indication: DIABETES MELLITUS
  5. CLOBETASOL [Concomitant]
     Indication: PSORIASIS
  6. CLOBETASOL [Concomitant]
     Indication: PSORIASIS
  7. CLOBETASOL [Concomitant]
     Indication: PSORIASIS
  8. CLOBETASOL [Concomitant]
     Indication: PSORIASIS
  9. AMITRIPTYLINE [Concomitant]
     Indication: PRODUCT USED FOR UNKNOWN INDICATION
  10. PAXIL [Concomitant]
     Indication: PRODUCT USED FOR UNKNOWN INDICATION
  11. PRILOSEC [Concomitant]
     Indication: PRODUCT USED FOR UNKNOWN INDICATION
  12. LOTENSIN [Concomitant]
     Indication: HYPERTENSION
  13. VITAMIN B [Concomitant]
     Indication: FIBROMYALGIA
  14. CRESTOR [Concomitant]
     Indication: PRODUCT USED FOR UNKNOWN INDICATION
  15. SYNTHROID [Concomitant]
     Indication: PRODUCT USED FOR UNKNOWN INDICATION

REACTIONS (3)
  - Familial tremor [Recovering/Resolving]
  - Acne [Recovering/Resolving]
  - Psoriasis [Not Recovered/Not Resolved]
